FAERS Safety Report 7438419-7 (Version None)
Quarter: 2011Q2

REPORT INFORMATION
  Report Type: 
  Country: None (occurrence: None)
  Receive Date: 20110426
  Receipt Date: 20110421
  Transmission Date: 20111010
  Serious: Yes (Other)
  Sender: FDA-Public Use
  Company Number: US-ABBOTT-11P-163-0721233-00

PATIENT
  Sex: Female
  Weight: 72.64 kg

DRUGS (1)
  1. HUMIRA [Suspect]
     Indication: ANKYLOSING SPONDYLITIS
     Route: 058
     Dates: start: 20101109

REACTIONS (5)
  - DEEP VEIN THROMBOSIS [None]
  - JOINT EFFUSION [None]
  - PULMONARY THROMBOSIS [None]
  - WEIGHT INCREASED [None]
  - ABSCESS LIMB [None]
